FAERS Safety Report 5733824-9 (Version None)
Quarter: 2008Q2

REPORT INFORMATION
  Report Type: 
  Country: None (occurrence: None)
  Receive Date: 20080509
  Receipt Date: 20080428
  Transmission Date: 20081010
  Serious: Yes (Hospitalization)
  Sender: FDA-Public Use
  Company Number: US-ELI_LILLY_AND_COMPANY-US200804007220

PATIENT
  Sex: Female

DRUGS (2)
  1. HUMULIN R [Suspect]
     Indication: DIABETES MELLITUS
  2. HUMULIN N [Suspect]

REACTIONS (8)
  - BACTERIAL DISEASE CARRIER [None]
  - BLINDNESS UNILATERAL [None]
  - BLOOD GLUCOSE DECREASED [None]
  - BLOOD GLUCOSE INCREASED [None]
  - FATIGUE [None]
  - HYPOTONIA [None]
  - MALAISE [None]
  - VOMITING [None]
